FAERS Safety Report 9469475 (Version 1)
Quarter: 2013Q3

REPORT INFORMATION
  Report Type: Spontaneous
  Country: BE (occurrence: BE)
  Receive Date: 20130822
  Receipt Date: 20130822
  Transmission Date: 20140515
  Serious: Yes (Other)
  Sender: FDA-Public Use
  Company Number: BE-AMGEN-BELSP2013058060

PATIENT
  Sex: Female

DRUGS (1)
  1. PROLIA [Suspect]
     Indication: PRODUCT USED FOR UNKNOWN INDICATION
     Dosage: UNK
     Route: 065
     Dates: start: 20130706

REACTIONS (8)
  - Lyme disease [Unknown]
  - Paraesthesia [Unknown]
  - Dry skin [Unknown]
  - Skin ulcer [Unknown]
  - Arthropod bite [Unknown]
  - Pruritus [Unknown]
  - Pain in extremity [Unknown]
  - Skin irritation [Unknown]
